FAERS Safety Report 23930418 (Version 2)
Quarter: 2024Q2

REPORT INFORMATION
  Report Type: Report from Study
  Country: US (occurrence: US)
  Receive Date: 20240602
  Receipt Date: 20240607
  Transmission Date: 20240716
  Serious: Yes (Other)
  Sender: FDA-Public Use
  Company Number: US-JNJFOC-20240573329

PATIENT
  Age: 67 Year
  Sex: Female

DRUGS (3)
  1. SPRAVATO [Suspect]
     Active Substance: ESKETAMINE
     Indication: Depression
     Dosage: ^56 MG, 2 TOTAL DOSES^
     Dates: start: 20240205, end: 20240208
  2. SPRAVATO [Suspect]
     Active Substance: ESKETAMINE
     Dosage: ^28 MG, 2 TOTAL DOSES^
     Dates: start: 20240212, end: 20240215
  3. SPRAVATO [Suspect]
     Active Substance: ESKETAMINE
     Dosage: ^56 MG, 7 TOTAL DOSES^
     Dates: start: 20240219, end: 20240319

REACTIONS (1)
  - Drug ineffective [Unknown]

NARRATIVE: CASE EVENT DATE: 20240101
